FAERS Safety Report 18817935 (Version 1)
Quarter: 2021Q1

REPORT INFORMATION
  Report Type: Spontaneous
  Country: BR (occurrence: BR)
  Receive Date: 20210201
  Receipt Date: 20210201
  Transmission Date: 20210419
  Serious: Yes (Other)
  Sender: FDA-Public Use
  Company Number: BR-KOWA-21JP000279

PATIENT
  Age: 66 Year
  Sex: Female
  Weight: 66 kg

DRUGS (2)
  1. BENICAR ANLO [Concomitant]
     Active Substance: AMLODIPINE BESYLATE\OLMESARTAN MEDOXOMIL
     Indication: HYPERTENSION
     Dosage: UNK UNK, QD
     Route: 048
  2. LIVALO [Suspect]
     Active Substance: PITAVASTATIN CALCIUM
     Indication: PRODUCT USED FOR UNKNOWN INDICATION
     Dosage: 2 MG, UNK
     Route: 048

REACTIONS (2)
  - Diverticulitis [Unknown]
  - Product residue present [Recovered/Resolved]

NARRATIVE: CASE EVENT DATE: 20210122
